FAERS Safety Report 6712450-9 (Version None)
Quarter: 2010Q2

REPORT INFORMATION
  Report Type: 
  Country: None (occurrence: None)
  Receive Date: 20100506
  Receipt Date: 20100427
  Transmission Date: 20101027
  Serious: Yes (Hospitalization)
  Sender: FDA-Public Use
  Company Number: 2008BI006090

PATIENT
  Age: 59 Year
  Sex: Female

DRUGS (3)
  1. AVONEX [Suspect]
     Indication: MULTIPLE SCLEROSIS
     Route: 030
     Dates: start: 20001113, end: 20030101
  2. AVONEX [Suspect]
     Route: 030
     Dates: start: 20030101
  3. COUMADIN [Concomitant]
     Indication: DEEP VEIN THROMBOSIS

REACTIONS (4)
  - CONTUSION [None]
  - DEEP VEIN THROMBOSIS [None]
  - FALL [None]
  - HAEMOPTYSIS [None]
